FAERS Safety Report 4637309-2 (Version None)
Quarter: 2005Q2

REPORT INFORMATION
  Report Type: 
  Country: None (occurrence: None)
  Receive Date: 20050328
  Receipt Date: 20041124
  Transmission Date: 20051028
  Serious: No
  Sender: FDA-Public Use
  Company Number: USA041184595

PATIENT
  Age: 50 Year
  Sex: Female

DRUGS (1)
  1. STRATTERA [Suspect]
     Indication: ATTENTION DEFICIT/HYPERACTIVITY DISORDER
     Dosage: 40 MG DAY
     Dates: start: 20041118

REACTIONS (8)
  - BLADDER DISORDER [None]
  - CHILLS [None]
  - DISTURBANCE IN SEXUAL AROUSAL [None]
  - DRY MOUTH [None]
  - LIBIDO DECREASED [None]
  - NAUSEA [None]
  - WEIGHT DECREASED [None]
  - YAWNING [None]
